FAERS Safety Report 4696271-7 (Version None)
Quarter: 2005Q2

REPORT INFORMATION
  Report Type: 
  Country: None (occurrence: None)
  Receive Date: 20050620
  Receipt Date: 20050601
  Transmission Date: 20051028
  Serious: Yes (Other)
  Sender: FDA-Public Use
  Company Number: 2005085317

PATIENT
  Age: 64 Year
  Sex: Female
  Weight: 65.7716 kg

DRUGS (7)
  1. BEXTRA [Suspect]
     Indication: ILL-DEFINED DISORDER
     Dosage: 10 MG (10 MG, 1 IN 1 D), ORAL
     Route: 048
     Dates: start: 20041101
  2. FOSAMAX [Concomitant]
  3. ALLEGRA [Concomitant]
  4. HYDROCHLOROTHIAZIDE/TRIAMTERENE (HYDROCHLOROTHIAZIDE, TRIAMTERENE) [Concomitant]
  5. K-DUR 10 [Concomitant]
  6. PREMARIN [Concomitant]
  7. FLONASE [Concomitant]

REACTIONS (2)
  - BLISTER [None]
  - INCORRECT DOSE ADMINISTERED [None]
